FAERS Safety Report 6804728-5 (Version None)
Quarter: 2010Q2

REPORT INFORMATION
  Report Type: 
  Country: None (occurrence: None)
  Receive Date: 20100628
  Receipt Date: 20070517
  Transmission Date: 20101027
  Serious: No
  Sender: FDA-Public Use
  Company Number: US-PFIZER INC-2007040263

PATIENT
  Sex: Female
  Weight: 88 kg

DRUGS (4)
  1. GEODON [Interacting]
     Indication: BIPOLAR DISORDER
     Dates: start: 20070508, end: 20070514
  2. WARFARIN SODIUM [Suspect]
     Indication: THROMBOSIS
     Dates: start: 20070201
  3. LITHIUM [Concomitant]
  4. SEROQUEL [Concomitant]
     Dates: start: 20060101, end: 20070511

REACTIONS (5)
  - DRUG INTERACTION [None]
  - DYSPNOEA [None]
  - MUSCLE SPASMS [None]
  - MUSCULOSKELETAL STIFFNESS [None]
  - TONGUE DISORDER [None]
